FAERS Safety Report 12757801 (Version 1)
Quarter: 2016Q3

REPORT INFORMATION
  Report Type: Report from Study
  Country: US (occurrence: US)
  Receive Date: 20160919
  Receipt Date: 20160919
  Transmission Date: 20161109
  Serious: Yes (Other)
  Sender: FDA-Public Use
  Company Number: US-ROCHE-1829767

PATIENT
  Age: 58 Year
  Sex: Female
  Weight: 61.8 kg

DRUGS (16)
  1. BEVACIZUMAB [Suspect]
     Active Substance: BEVACIZUMAB
     Dosage: LAST DOSE ADMINISTERED ON 22/MAY/2014.
     Route: 042
     Dates: start: 20140522
  2. BEVACIZUMAB [Suspect]
     Active Substance: BEVACIZUMAB
     Dosage: LAST DOSE ADMINISTERED ON 22/MAY/2014.
     Route: 042
     Dates: start: 20140213
  3. VELIPARIB [Suspect]
     Active Substance: VELIPARIB
     Dosage: LAST DOSE ADMINISTERED ON 22/MAY/2014.
     Route: 048
     Dates: start: 20140109
  4. VELIPARIB [Suspect]
     Active Substance: VELIPARIB
     Dosage: LAST DOSE ADMINISTERED ON 22/MAY/2014.
     Route: 048
     Dates: start: 20140522
  5. BEVACIZUMAB [Suspect]
     Active Substance: BEVACIZUMAB
     Dosage: LAST DOSE ADMINISTERED ON 22/MAY/2014.
     Route: 042
     Dates: start: 20131205
  6. BEVACIZUMAB [Suspect]
     Active Substance: BEVACIZUMAB
     Dosage: LAST DOSE ADMINISTERED ON 22/MAY/2014.
     Route: 042
     Dates: start: 20131009
  7. BEVACIZUMAB [Suspect]
     Active Substance: BEVACIZUMAB
     Dosage: LAST DOSE ADMINISTERED ON 22/MAY/2014.
     Route: 042
     Dates: start: 20140502
  8. BEVACIZUMAB [Suspect]
     Active Substance: BEVACIZUMAB
     Dosage: LAST DOSE ADMINISTERED ON 22/MAY/2014.
     Route: 042
     Dates: start: 20131107
  9. BEVACIZUMAB [Suspect]
     Active Substance: BEVACIZUMAB
     Dosage: LAST DOSE ADMINISTERED ON 22/MAY/2014.
     Route: 042
     Dates: start: 20140109
  10. VELIPARIB [Suspect]
     Active Substance: VELIPARIB
     Dosage: LAST DOSE ADMINISTERED ON 22/MAY/2014.
     Route: 048
     Dates: start: 20131205
  11. VELIPARIB [Suspect]
     Active Substance: VELIPARIB
     Indication: OVARIAN EPITHELIAL CANCER
     Dosage: LAST DOSE ADMINISTERED ON 22/MAY/2014.
     Route: 048
     Dates: start: 20130909
  12. VELIPARIB [Suspect]
     Active Substance: VELIPARIB
     Dosage: LAST DOSE ADMINISTERED ON 22/MAY/2014.
     Route: 048
     Dates: start: 20140502
  13. VELIPARIB [Suspect]
     Active Substance: VELIPARIB
     Dosage: LAST DOSE ADMINISTERED ON 22/MAY/2014.
     Route: 048
     Dates: start: 20131009
  14. VELIPARIB [Suspect]
     Active Substance: VELIPARIB
     Dosage: LAST DOSE ADMINISTERED ON 22/MAY/2014.
     Route: 048
     Dates: start: 20131107
  15. BEVACIZUMAB [Suspect]
     Active Substance: BEVACIZUMAB
     Indication: OVARIAN EPITHELIAL CANCER
     Dosage: LAST DOSE ADMINISTERED ON 22/MAY/2014.
     Route: 042
     Dates: start: 20130909
  16. VELIPARIB [Suspect]
     Active Substance: VELIPARIB
     Dosage: LAST DOSE ADMINISTERED ON 22/MAY/2014.
     Route: 048
     Dates: start: 20140213

REACTIONS (4)
  - Neutrophil count decreased [Unknown]
  - Hypertension [Unknown]
  - Platelet count decreased [Unknown]
  - Anaemia [Unknown]
